FAERS Safety Report 8799042 (Version 1)
Quarter: 2012Q4

REPORT INFORMATION
  Report Type: 
  Country: GB (occurrence: GB)
  Receive Date: 20120920
  Receipt Date: 20120920
  Transmission Date: 20130627
  Serious: Yes (Other)
  Sender: FDA-Public Use
  Company Number: PHHY2012GB080761

PATIENT
  Age: 39 Year
  Sex: Male
  Weight: 116 kg

DRUGS (5)
  1. SIMVASTATIN [Suspect]
     Dosage: 40 mg, UNK
     Route: 048
     Dates: start: 2007, end: 20120724
  2. VALPROIC ACID [Suspect]
     Indication: AFFECTIVE DISORDER
     Dosage: 750 mg, daily
     Route: 048
     Dates: start: 20120702
  3. VALPROIC ACID [Suspect]
     Indication: SCHIZOPHRENIA
  4. CITALOPRAM [Concomitant]
     Indication: DEPRESSION
     Dosage: 20 mg, UNK
     Route: 048
     Dates: start: 2008
  5. OLANZAPINE [Concomitant]
     Indication: SCHIZOPHRENIA
     Dosage: 15 mg, QD
     Route: 048
     Dates: start: 2005

REACTIONS (2)
  - Blood creatine phosphokinase increased [Recovered/Resolved]
  - Myalgia [Recovered/Resolved]
